FAERS Safety Report 24044882 (Version 3)
Quarter: 2024Q3

REPORT INFORMATION
  Report Type: Spontaneous
  Country: FR (occurrence: FR)
  Receive Date: 20240703
  Receipt Date: 20240726
  Transmission Date: 20241016
  Serious: Yes (Hospitalization, Other)
  Sender: SANOFI AVENTIS
  Company Number: FR-MLMSERVICE-20240617-PI102143-00232-1

PATIENT
  Age: 50 Year
  Sex: Female
  Weight: 64 kg

DRUGS (6)
  1. THYMOGLOBULIN [Suspect]
     Active Substance: LAPINE T-LYMPHOCYTE IMMUNE GLOBULIN
     Indication: Immunosuppressant drug therapy
     Dosage: 87.5MG; 1D; 1ST DAY OF TRANSPLANTATION DURING 2 DAYS
     Route: 042
     Dates: start: 202107, end: 2021
  2. THYMOGLOBULIN [Suspect]
     Active Substance: LAPINE T-LYMPHOCYTE IMMUNE GLOBULIN
     Dosage: 50MG; ON THE 2 LAST DAYS
     Route: 042
     Dates: start: 2021, end: 2021
  3. THYMOGLOBULIN [Suspect]
     Active Substance: LAPINE T-LYMPHOCYTE IMMUNE GLOBULIN
     Dosage: 75 MG, QD
     Route: 042
     Dates: start: 2021, end: 2021
  4. TACROLIMUS [Suspect]
     Active Substance: TACROLIMUS
     Indication: Immunosuppressant drug therapy
     Dosage: 10MG; BEGINNING AT THE 3TH DAY
     Route: 048
     Dates: start: 202107
  5. MYCOPHENOLATE MOFETIL [Suspect]
     Active Substance: MYCOPHENOLATE MOFETIL
     Indication: Immunosuppressant drug therapy
     Dosage: 2000 MG, QD
     Route: 048
     Dates: start: 202107
  6. CORTICOSTEROID NOS [Suspect]
     Active Substance: CORTICOSTEROID NOS
     Indication: Immunosuppressant drug therapy

REACTIONS (4)
  - Chronic hepatitis [Recovered/Resolved]
  - Hepatitis E [Recovered/Resolved]
  - Lymphopenia [Unknown]
  - Viraemia [Recovered/Resolved]

NARRATIVE: CASE EVENT DATE: 20210101
